FAERS Safety Report 14338369 (Version 2)
Quarter: 2018Q3

REPORT INFORMATION
  Report Type: Spontaneous
  Country: FR (occurrence: FR)
  Receive Date: 20171229
  Receipt Date: 20180801
  Transmission Date: 20181010
  Serious: Yes (Hospitalization, Other)
  Sender: FDA-Public Use
  Company Number: FR-TELIGENT, INC-IGIL20170838

PATIENT
  Age: 65 Year
  Sex: Male
  Weight: 90 kg

DRUGS (7)
  1. FLAGYL [Suspect]
     Active Substance: METRONIDAZOLE\METRONIDAZOLE HYDROCHLORIDE
     Indication: OSTEOMYELITIS
     Route: 048
     Dates: start: 20171031, end: 20171106
  2. PERINDOPRIL [Concomitant]
     Active Substance: PERINDOPRIL
     Indication: PRODUCT USED FOR UNKNOWN INDICATION
     Route: 065
  3. INDAPAMIDE. [Concomitant]
     Active Substance: INDAPAMIDE
     Indication: PRODUCT USED FOR UNKNOWN INDICATION
     Route: 065
  4. KARDEGIC [Concomitant]
     Active Substance: ASPIRIN DL-LYSINE
     Indication: PRODUCT USED FOR UNKNOWN INDICATION
     Dosage: 75 MG
     Route: 065
  5. CEFTAZIDIME. [Suspect]
     Active Substance: CEFTAZIDIME
     Indication: OSTEOMYELITIS
     Dosage: ND
     Route: 042
     Dates: start: 20171031, end: 20171106
  6. VANCOMYCINE [Suspect]
     Active Substance: VANCOMYCIN
     Indication: OSTEOMYELITIS
     Route: 042
     Dates: start: 20171031, end: 20171106
  7. OMEPRAZOLE. [Concomitant]
     Active Substance: OMEPRAZOLE
     Indication: PRODUCT USED FOR UNKNOWN INDICATION
     Route: 065

REACTIONS (1)
  - Acute kidney injury [Recovered/Resolved]

NARRATIVE: CASE EVENT DATE: 20171106
